FAERS Safety Report 9034530 (Version 1)
Quarter: 2013Q1

REPORT INFORMATION
  Report Type: Spontaneous
  Country: US (occurrence: None)
  Receive Date: 20130116
  Receipt Date: 20130116
  Transmission Date: 20140127
  Serious: No
  Sender: FDA-Public Use
  Company Number: None

PATIENT
  Age: 43 Year
  Sex: 0

DRUGS (1)
  1. IMURAN [Suspect]
     Dates: start: 20120818, end: 20120921

REACTIONS (4)
  - Alopecia [None]
  - Diarrhoea [None]
  - Alanine aminotransferase increased [None]
  - Idiosyncratic drug reaction [None]
